FAERS Safety Report 6738477-9 (Version None)
Quarter: 2010Q2

REPORT INFORMATION
  Report Type: 
  Country: None (occurrence: None)
  Receive Date: 20100524
  Receipt Date: 20100512
  Transmission Date: 20101027
  Serious: Yes (Hospitalization)
  Sender: FDA-Public Use
  Company Number: PHHY2009NL55631

PATIENT
  Sex: Male

DRUGS (32)
  1. ZOMETA [Suspect]
     Dosage: 4 MG, UNK
     Route: 042
     Dates: start: 20080131, end: 20091215
  2. ZOMETA [Suspect]
     Dosage: 4 MG, UNK
     Dates: start: 20100112
  3. ZOMETA [Suspect]
     Dosage: 4 MG, UNK
     Dates: start: 20100209
  4. ZOMETA [Suspect]
     Dosage: 4 MG, UNK
     Dates: start: 20100309
  5. ZOMETA [Suspect]
     Dosage: 4 MG, UNK
     Dates: start: 20100401
  6. ZOMETA [Suspect]
     Dosage: 4 MG, UNK
     Dates: start: 20080228
  7. ZOMETA [Suspect]
     Dosage: 4 MG, UNK
     Dates: start: 20080327
  8. ZOMETA [Suspect]
     Dosage: 4 MG, UNK
     Dates: start: 20080522
  9. ZOMETA [Suspect]
     Dosage: 4 MG, UNK
     Dates: start: 20080619
  10. ZOMETA [Suspect]
     Dosage: 4 MG, UNK
     Dates: start: 20080717
  11. ZOMETA [Suspect]
     Dosage: 4 MG, UNK
     Dates: start: 20080814
  12. ZOMETA [Suspect]
     Dosage: 4 MG, UNK
     Dates: start: 20080912
  13. ZOMETA [Suspect]
     Dosage: 4 MG, UNK
     Dates: start: 20081010
  14. ZOMETA [Suspect]
     Dosage: 4 MG, UNK
     Dates: start: 20081110
  15. ZOMETA [Suspect]
     Dosage: 4 MG, UNK
     Dates: start: 20081205
  16. ZOMETA [Suspect]
     Dosage: 4 MG, UNK
     Dates: start: 20090102
  17. ZOMETA [Suspect]
     Dosage: 4 MG, UNK
     Dates: start: 20090130
  18. ZOMETA [Suspect]
     Dosage: 4 MG, UNK
     Dates: start: 20090304
  19. ZOMETA [Suspect]
     Dosage: 4 MG, UNK
     Dates: start: 20090401
  20. ZOMETA [Suspect]
     Dosage: 4 MG, UNK
     Dates: start: 20090428
  21. ZOMETA [Suspect]
     Dosage: 4 MG, UNK
     Dates: start: 20090527
  22. ZOMETA [Suspect]
     Dosage: 4 MG, UNK
     Dates: start: 20090622
  23. ZOMETA [Suspect]
     Dosage: 4 MG, UNK
     Dates: start: 20090610
  24. ZOMETA [Suspect]
     Dosage: 4 MG, UNK
     Dates: start: 20090810
  25. ZOMETA [Suspect]
     Dosage: 4 MG, UNK
     Dates: start: 20090910
  26. ZOMETA [Suspect]
     Dosage: 4 MG, UNK
     Dates: start: 20091009
  27. ZOMETA [Suspect]
     Dosage: 4 MG, UNK
     Dates: start: 20091113
  28. ZOMETA [Suspect]
     Dosage: 4 MG, UNK
     Dates: start: 20091215
  29. ZOMETA [Suspect]
     Dosage: UNK
     Dates: start: 20100112
  30. ZOMETA [Suspect]
     Dosage: UNK
     Dates: start: 20100209
  31. ZOMETA [Suspect]
     Dosage: UNK
     Dates: start: 20100309
  32. ZOMETA [Suspect]
     Dosage: UNK
     Dates: start: 20100401

REACTIONS (6)
  - BONE PAIN [None]
  - FLUID RETENTION [None]
  - NERVOUS SYSTEM DISORDER [None]
  - RENAL FAILURE [None]
  - RENAL SURGERY [None]
  - SPINAL CORD NEOPLASM [None]
